FAERS Safety Report 7369647-7 (Version None)
Quarter: 2011Q1

REPORT INFORMATION
  Report Type: 
  Country: None (occurrence: None)
  Receive Date: 20110323
  Receipt Date: 20110317
  Transmission Date: 20110831
  Serious: Yes (Other)
  Sender: FDA-Public Use
  Company Number: GB-PFIZER INC-2011059698

PATIENT
  Age: 62 Year
  Sex: Female

DRUGS (3)
  1. IMATINIB [Suspect]
     Indication: GASTROINTESTINAL STROMAL TUMOUR
     Dosage: 400 MG, 1X/DAY
     Dates: start: 20060201, end: 20081001
  2. IMATINIB [Suspect]
     Dosage: 800 MG, 1X/DAY
     Dates: start: 20081020, end: 20091111
  3. SUTENT [Suspect]
     Dosage: 3.75 MG, UNK
     Dates: end: 20101012

REACTIONS (5)
  - PERIORBITAL OEDEMA [None]
  - METASTASES TO LIVER [None]
  - DISEASE PROGRESSION [None]
  - DIARRHOEA [None]
  - GASTROINTESTINAL STROMAL TUMOUR [None]
